FAERS Safety Report 16840890 (Version 3)
Quarter: 2019Q4

REPORT INFORMATION
  Report Type: Spontaneous
  Country: US (occurrence: US)
  Receive Date: 20190923
  Receipt Date: 20191022
  Transmission Date: 20200122
  Serious: No
  Sender: FDA-Public Use
  Company Number: US-JNJFOC-20190928618

PATIENT
  Age: 72 Year
  Sex: Male
  Weight: 78 kg

DRUGS (5)
  1. IMBRUVICA [Suspect]
     Active Substance: IBRUTINIB
     Dosage: 280 MG, QD
     Route: 048
     Dates: start: 20190910
  2. PLAVIX [Concomitant]
     Active Substance: CLOPIDOGREL BISULFATE
  3. IMBRUVICA [Suspect]
     Active Substance: IBRUTINIB
     Indication: CHRONIC LYMPHOCYTIC LEUKAEMIA
     Dosage: 280 MG, UNK
     Route: 048
     Dates: start: 20190913
  4. DOXYCYCLINE. [Concomitant]
     Active Substance: DOXYCYCLINE
  5. SENNA                              /00142201/ [Concomitant]
     Active Substance: SENNA LEAF

REACTIONS (8)
  - Abdominal discomfort [Unknown]
  - Hiccups [Not Recovered/Not Resolved]
  - Disease progression [Unknown]
  - Swelling face [Recovered/Resolved]
  - Joint swelling [Not Recovered/Not Resolved]
  - Joint effusion [Not Recovered/Not Resolved]
  - Eye oedema [Not Recovered/Not Resolved]
  - Eye swelling [Not Recovered/Not Resolved]

NARRATIVE: CASE EVENT DATE: 20190916
